FAERS Safety Report 21815135 (Version 1)
Quarter: 2023Q1

REPORT INFORMATION
  Report Type: Spontaneous
  Country: FR (occurrence: None)
  Receive Date: 20230104
  Receipt Date: 20230104
  Transmission Date: 20230418
  Serious: Yes (Hospitalization)
  Sender: FDA-Public Use
  Company Number: None

PATIENT
  Age: 30 Year
  Sex: Female
  Weight: 49 kg

DRUGS (3)
  1. CHORIOGONADOTROPIN ALFA [Suspect]
     Active Substance: CHORIOGONADOTROPIN ALFA
     Indication: Assisted fertilisation
     Dosage: 250MICROGRAMS/0.5 ML SOLUTION FOR INJECTION IN PRE-FILLED SYRINGE
     Route: 058
     Dates: start: 20221121, end: 20221121
  2. CLOMID [Suspect]
     Active Substance: CLOMIPHENE CITRATE
     Indication: Assisted fertilisation
     Dosage: NOT SPECIFIED
     Route: 048
     Dates: start: 20221010, end: 20221114
  3. DUPHASTON [Suspect]
     Active Substance: DYDROGESTERONE
     Indication: Assisted fertilisation
     Dosage: NOT SPECIFIED
     Route: 048
     Dates: start: 20221026, end: 20221105

REACTIONS (1)
  - Haemorrhagic stroke [Recovering/Resolving]

NARRATIVE: CASE EVENT DATE: 20221122
